FAERS Safety Report 16758117 (Version 1)
Quarter: 2019Q3

REPORT INFORMATION
  Report Type: Report from Study
  Country: DE (occurrence: DE)
  Receive Date: 20190830
  Receipt Date: 20190830
  Transmission Date: 20191005
  Serious: Yes (Other)
  Sender: FDA-Public Use
  Company Number: DE-BIOGEN-2019BI00779312

PATIENT
  Age: 23 Year
  Sex: Female

DRUGS (1)
  1. TECFIDERA [Suspect]
     Active Substance: DIMETHYL FUMARATE
     Indication: MULTIPLE SCLEROSIS
     Route: 048

REACTIONS (7)
  - Abdominal pain upper [Unknown]
  - Alopecia [Unknown]
  - Epilepsy [Unknown]
  - Hot flush [Unknown]
  - Flushing [Recovered/Resolved]
  - Increased tendency to bruise [Unknown]
  - Gastrointestinal disorder [Unknown]
